FAERS Safety Report 21514748 (Version 1)
Quarter: 2022Q4

REPORT INFORMATION
  Report Type: Spontaneous
  Country: US (occurrence: US)
  Receive Date: 20221027
  Receipt Date: 20221027
  Transmission Date: 20230113
  Serious: Yes (Other)
  Sender: FDA-Public Use
  Company Number: US-PFIZER INC-PV202200090089

PATIENT
  Age: 82 Year
  Sex: Male
  Weight: 72.562 kg

DRUGS (1)
  1. METOPROLOL TARTRATE [Suspect]
     Active Substance: METOPROLOL TARTRATE
     Dosage: UNK
     Dates: end: 20211201

REACTIONS (2)
  - Atrial fibrillation [Unknown]
  - Drug ineffective [Unknown]
